FAERS Safety Report 19893137 (Version 1)
Quarter: 2021Q3

REPORT INFORMATION
  Report Type: Spontaneous
  Country: IN (occurrence: IN)
  Receive Date: 20210929
  Receipt Date: 20210929
  Transmission Date: 20211014
  Serious: Yes (Other)
  Sender: FDA-Public Use
  Company Number: IN-SA-2017SA223251

PATIENT
  Age: 24 Year
  Sex: Male

DRUGS (1)
  1. TRIAMCINOLONE ACETONIDE. [Suspect]
     Active Substance: TRIAMCINOLONE ACETONIDE
     Indication: URTICARIA
     Dosage: UNK UNK,UNK
     Route: 030

REACTIONS (7)
  - Skin discolouration [Unknown]
  - Embolia cutis medicamentosa [Unknown]
  - Skin ulcer [Recovered/Resolved]
  - Injection site reaction [Unknown]
  - Tenderness [Unknown]
  - Pain [Unknown]
  - Induration [Unknown]
